FAERS Safety Report 8544415-9 (Version None)
Quarter: 2012Q3

REPORT INFORMATION
  Report Type: 
  Country: None (occurrence: None)
  Receive Date: 20120727
  Receipt Date: 20120725
  Transmission Date: 20120928
  Serious: Yes (Death, Life-Threatening, Hospitalization)
  Sender: FDA-Public Use
  Company Number: ES-AMGEN-ESPCT2012004679

PATIENT
  Age: 70 Year
  Sex: Male
  Weight: 56 kg

DRUGS (16)
  1. OXALIPLATIN [Concomitant]
     Indication: COLORECTAL CANCER
     Dosage: 139.4 MG, UNK
     Dates: start: 20111028, end: 20120110
  2. OXALIPLATIN [Concomitant]
     Dates: start: 20120110, end: 20120110
  3. OMEPRAZOLE [Concomitant]
     Indication: GASTRITIS
     Route: 048
     Dates: start: 20120116, end: 20120117
  4. RANITIDINE HCL [Concomitant]
     Indication: GASTRITIS
     Route: 042
     Dates: start: 20120116, end: 20120116
  5. INSULIN [Concomitant]
     Indication: TYPE 2 DIABETES MELLITUS
     Dosage: UNK
     Route: 042
     Dates: start: 20120116, end: 20120118
  6. ACETAMINOPHEN [Concomitant]
     Indication: PAIN
     Route: 048
     Dates: start: 20120116, end: 20120117
  7. FLUOROURACIL [Concomitant]
     Indication: COLORECTAL CANCER
     Dosage: UNK
     Route: 042
     Dates: start: 20111028, end: 20120112
  8. LEUCOVORIN CALCIUM [Concomitant]
     Indication: COLORECTAL CANCER
     Dosage: 656 MG, Q2WK
     Route: 042
     Dates: start: 20111028, end: 20120110
  9. LEVOFLOXACIN [Concomitant]
     Indication: RESPIRATORY TRACT INFECTION
     Route: 048
     Dates: start: 20111125, end: 20111205
  10. GLYBURIDE [Concomitant]
     Indication: TYPE 2 DIABETES MELLITUS
     Route: 048
     Dates: start: 20010817, end: 20120117
  11. NISTATIN [Concomitant]
     Indication: MUCOSAL INFLAMMATION
     Route: 048
     Dates: start: 20110116, end: 20120117
  12. LACTULOSE [Concomitant]
     Indication: CONSTIPATION
     Dosage: UNK
     Route: 048
     Dates: start: 20120116, end: 20120117
  13. SITAGLIPTIN [Concomitant]
     Indication: TYPE 2 DIABETES MELLITUS
     Route: 048
     Dates: start: 20010817, end: 20120117
  14. MAGNESIUM LACTATE [Concomitant]
     Indication: HYPOMAGNESAEMIA
     Dosage: UNK
     Route: 048
     Dates: start: 20111111, end: 20120117
  15. MORPHINE HCL [Concomitant]
     Indication: ABDOMINAL PAIN LOWER
     Dosage: UNK
     Route: 058
     Dates: start: 20120116, end: 20120116
  16. PANITUMUMAB [Suspect]
     Indication: COLORECTAL CANCER METASTATIC
     Dosage: 336 MG, UNK
     Dates: start: 20110902, end: 20120110

REACTIONS (1)
  - RECTAL PERFORATION [None]
